FAERS Safety Report 5615626-7 (Version None)
Quarter: 2008Q1

REPORT INFORMATION
  Report Type: 
  Country: None (occurrence: None)
  Receive Date: 20080206
  Receipt Date: 20080128
  Transmission Date: 20080703
  Serious: Yes (Death, Hospitalization)
  Sender: FDA-Public Use
  Company Number: B0496408A

PATIENT
  Age: 75 Year
  Sex: Male
  Weight: 65 kg

DRUGS (3)
  1. FLOLAN [Suspect]
     Indication: DRUG USE FOR UNKNOWN INDICATION
     Dosage: 24MGKM PER DAY
     Route: 065
     Dates: start: 20070227
  2. PREDNISOLONE [Concomitant]
     Dosage: 60MG PER DAY
     Route: 065
     Dates: start: 20071009
  3. CIALIS [Concomitant]
     Dosage: 10MG PER DAY
     Route: 065
     Dates: start: 20070806

REACTIONS (2)
  - DEATH [None]
  - PYREXIA [None]
